FAERS Safety Report 11767872 (Version 2)
Quarter: 2015Q4

REPORT INFORMATION
  Report Type: Spontaneous
  Country: FI (occurrence: FI)
  Receive Date: 20151123
  Receipt Date: 20151130
  Transmission Date: 20160304
  Serious: Yes (Other)
  Sender: FDA-Public Use
  Company Number: CHPA2015FI013430

PATIENT

DRUGS (2)
  1. NICOTINELL COATED GUM LIQUIRICE [Suspect]
     Active Substance: NICOTINE
     Indication: SMOKING CESSATION THERAPY
     Dosage: MORE THAN 15 PIECES, QD
     Route: 065
  2. NICOTINELL COATED GUM LIQUIRICE [Suspect]
     Active Substance: NICOTINE
     Dosage: 5-6 PIECES, QD
     Route: 065

REACTIONS (6)
  - Incorrect dose administered [Unknown]
  - Crying [Unknown]
  - Self-injurious ideation [Not Recovered/Not Resolved]
  - Drug ineffective [Unknown]
  - Nicotine dependence [Not Recovered/Not Resolved]
  - Oropharyngeal pain [Unknown]

NARRATIVE: CASE EVENT DATE: 20151110
